FAERS Safety Report 11696802 (Version 1)
Quarter: 2015Q4

REPORT INFORMATION
  Report Type: Spontaneous
  Country: BR (occurrence: BR)
  Receive Date: 20151104
  Receipt Date: 20151104
  Transmission Date: 20160304
  Serious: Yes (Hospitalization, Other)
  Sender: FDA-Public Use
  Company Number: PHHY2015BR140263

PATIENT
  Age: 40 Year
  Sex: Female
  Weight: 60 kg

DRUGS (9)
  1. RAZAPINA [Suspect]
     Active Substance: MIRTAZAPINE
     Dosage: 120 MG, QD (FOR 4-5 DAYS)
     Route: 048
  2. QUETIAPINE [Concomitant]
     Active Substance: QUETIAPINE
     Indication: PRODUCT USED FOR UNKNOWN INDICATION
     Dosage: 200 MG, QD
     Route: 065
  3. RAZAPINA [Suspect]
     Active Substance: MIRTAZAPINE
     Indication: DEPRESSION
     Dosage: 30 MG, QD
     Route: 048
  4. RAZAPINA [Suspect]
     Active Substance: MIRTAZAPINE
     Dosage: 60 MG, QD
     Route: 048
  5. VENLAFAXINE [Suspect]
     Active Substance: VENLAFAXINE HYDROCHLORIDE
     Indication: PRODUCT USED FOR UNKNOWN INDICATION
     Dosage: 300 MG, QD
     Route: 065
  6. RAZAPINA [Suspect]
     Active Substance: MIRTAZAPINE
     Dosage: 90 MG, QD (PER WEEK)
     Route: 048
  7. RAZAPINA [Suspect]
     Active Substance: MIRTAZAPINE
     Indication: ANXIETY
     Dosage: 60 MG, QD
     Route: 048
     Dates: end: 20151025
  8. FRONTAL [Concomitant]
     Active Substance: ALPRAZOLAM
     Indication: ANXIETY
     Dosage: 6 MG, QD
     Route: 065
  9. LAMITOR [Concomitant]
     Active Substance: LAMOTRIGINE
     Indication: PRODUCT USED FOR UNKNOWN INDICATION
     Dosage: 100 MG, QD
     Route: 065

REACTIONS (14)
  - Feeling abnormal [Recovering/Resolving]
  - Abasia [Recovering/Resolving]
  - Aphasia [Recovering/Resolving]
  - Corneal reflex decreased [Recovering/Resolving]
  - Dizziness [Recovering/Resolving]
  - Confusional state [Recovering/Resolving]
  - Syncope [Recovering/Resolving]
  - Sleep disorder [Recovering/Resolving]
  - Dysphagia [Recovering/Resolving]
  - Disorientation [Recovering/Resolving]
  - Tremor [Recovering/Resolving]
  - Movement disorder [Recovering/Resolving]
  - Fatigue [Recovering/Resolving]
  - Lethargy [Recovering/Resolving]
